FAERS Safety Report 16705614 (Version 12)
Quarter: 2020Q3

REPORT INFORMATION
  Report Type: Report from Study
  Country: BR (occurrence: BR)
  Receive Date: 20190815
  Receipt Date: 20200930
  Transmission Date: 20201102
  Serious: Yes (Hospitalization, Disabling)
  Sender: FDA-Public Use
  Company Number: BR-ROCHE-2379364

PATIENT
  Age: 65 Year
  Sex: Female
  Weight: 51 kg

DRUGS (43)
  1. DIPHENHYDRAMINE. [Concomitant]
     Active Substance: DIPHENHYDRAMINE
     Dates: start: 20190718, end: 20190718
  2. FENOTEROL;IPRATROPIUM [Concomitant]
     Active Substance: FENOTEROL\IPRATROPIUM
     Indication: DYSPNOEA
     Dates: start: 20190809, end: 20190814
  3. NISTATIN [Concomitant]
     Active Substance: NYSTATIN
     Dates: start: 20190813, end: 20190815
  4. PACLITAXEL. [Suspect]
     Active Substance: PACLITAXEL
     Indication: HER2 POSITIVE BREAST CANCER
     Dosage: FOR 12 CONTINUOUS WEEKS?DATE OF MOST RECENT DOSE OF PACLITAXEL (114.4 MG) PRIOR TO MYOCARDITIS ONSET
     Route: 042
     Dates: start: 20190718
  5. CYCLOPHOSPHAMIDE. [Suspect]
     Active Substance: CYCLOPHOSPHAMIDE
     Indication: HER2 POSITIVE BREAST CANCER
     Dosage: DATE OF MOST RECENT DOSE OF CYCLOPHOSPHAMIDE (882 MG) PRIOR TO MYOCARDITIS ONSET: 03/JUL/2019
     Route: 042
     Dates: start: 20190521
  6. ENOXAPARIN [Concomitant]
     Active Substance: ENOXAPARIN
     Dates: start: 20190811, end: 20190815
  7. ONDANSETRON [Concomitant]
     Active Substance: ONDANSETRON
     Indication: VOMITING
     Dates: start: 20190703
  8. RANITIDINE. [Concomitant]
     Active Substance: RANITIDINE
     Indication: GASTRITIS
     Dates: start: 20190625
  9. RANITIDINE. [Concomitant]
     Active Substance: RANITIDINE
     Dates: start: 20190725, end: 20190725
  10. RANITIDINE. [Concomitant]
     Active Substance: RANITIDINE
     Dates: start: 20190802, end: 20190802
  11. DOMPERIDONE [Concomitant]
     Active Substance: DOMPERIDONE
     Indication: ABDOMINAL PAIN
     Dates: start: 20190625
  12. DEXAMETHASONE. [Concomitant]
     Active Substance: DEXAMETHASONE
     Route: 042
     Dates: start: 20190718, end: 20190718
  13. DIPHENHYDRAMINE. [Concomitant]
     Active Substance: DIPHENHYDRAMINE
     Dates: start: 20190802, end: 20190802
  14. LACRIMAL [Concomitant]
     Indication: MEIBOMIANITIS
     Dosage: EYE DROPS
     Dates: start: 20190806
  15. DIPYRONE [Concomitant]
     Active Substance: DIPYRONE
     Dates: start: 20190809, end: 20190814
  16. ATEZOLIZUMAB. [Suspect]
     Active Substance: ATEZOLIZUMAB
     Indication: HER2 POSITIVE BREAST CANCER
     Dosage: FOR 4 CYCLES?DATE OF MOST RECENT DOSE OF ATEZOLIZUMAB PRIOR TO MYOCARDITIS ONSET: 09/AUG/2019
     Route: 042
     Dates: start: 20190521
  17. PERTUZUMAB. [Suspect]
     Active Substance: PERTUZUMAB
     Indication: HER2 POSITIVE BREAST CANCER
     Dosage: LOADING DOSE IN CYCLE 1
     Route: 042
     Dates: start: 20190718
  18. ONDANSETRON [Concomitant]
     Active Substance: ONDANSETRON
     Dates: start: 20190812, end: 20190812
  19. RED BLOOD CELLS [Concomitant]
     Active Substance: HUMAN RED BLOOD CELL
     Indication: ANAEMIA
     Dates: start: 20190805, end: 20190805
  20. DEXAMETHASONE. [Concomitant]
     Active Substance: DEXAMETHASONE
     Route: 042
     Dates: start: 20190809, end: 20190809
  21. DIPHENHYDRAMINE. [Concomitant]
     Active Substance: DIPHENHYDRAMINE
     Dates: start: 20190809, end: 20190809
  22. METILPREDNISOLONE [Concomitant]
     Active Substance: METHYLPREDNISOLONE
     Indication: PNEUMONITIS
     Dosage: 1 MG/KG
     Route: 042
     Dates: start: 20190809, end: 20190814
  23. OMEPRAZOL [Concomitant]
     Active Substance: OMEPRAZOLE
     Indication: GASTRITIS
     Dates: start: 20190625
  24. FILGRASTIM [Concomitant]
     Active Substance: FILGRASTIM
     Indication: NEUTROPENIA
     Dates: start: 20190704, end: 20190710
  25. METOCLOPRAMIDE. [Concomitant]
     Active Substance: METOCLOPRAMIDE
     Dates: start: 20190810, end: 20190813
  26. PARACETAMOL [Concomitant]
     Active Substance: ACETAMINOPHEN
     Dates: start: 20190810, end: 20190810
  27. LOSARTAN. [Concomitant]
     Active Substance: LOSARTAN
     Indication: HYPERTENSION
     Dates: start: 20190810, end: 20190815
  28. AMLODIPINE [Concomitant]
     Active Substance: AMLODIPINE BESYLATE
     Indication: HYPERTENSION
     Dates: start: 20190814, end: 20190814
  29. TRASTUZUMAB. [Suspect]
     Active Substance: TRASTUZUMAB
     Indication: HER2 POSITIVE BREAST CANCER
     Dosage: LOADING DOSE IN CYCLE 1
     Route: 042
     Dates: start: 20190718
  30. DEXAMETHASONE. [Concomitant]
     Active Substance: DEXAMETHASONE
     Route: 042
     Dates: start: 20190725, end: 20190725
  31. CEFUROXIME. [Concomitant]
     Active Substance: CEFUROXIME
     Dates: start: 20190809, end: 20190815
  32. MORPHINE SULPHATE [Concomitant]
     Active Substance: MORPHINE SULFATE
     Dates: start: 20190810, end: 20190812
  33. UREA. [Concomitant]
     Active Substance: UREA
     Dates: start: 20190813, end: 20190814
  34. DOXORUBICIN [Suspect]
     Active Substance: DOXORUBICIN
     Indication: HER2 POSITIVE BREAST CANCER
     Dosage: DATE OF MOST RECENT DOSE OF DOXORUBICIN (88.2 MG) PRIOR TO MYOCARDITIS ONSET: 03/JUL/2019
     Route: 042
     Dates: start: 20190521
  35. TRASTUZUMAB. [Suspect]
     Active Substance: TRASTUZUMAB
     Dosage: MAINTENANCE DOSE?DATE OF MOST RECENT DOSE OF TRASTUZUMAB (306 MG) PRIOR TO MYOCARDITIS ONSET: 09/AUG
     Route: 042
     Dates: start: 20190809
  36. RANITIDINE. [Concomitant]
     Active Substance: RANITIDINE
     Dates: start: 20190718, end: 20190718
  37. RANITIDINE. [Concomitant]
     Active Substance: RANITIDINE
     Dates: start: 20190809, end: 20190809
  38. DIPHENHYDRAMINE. [Concomitant]
     Active Substance: DIPHENHYDRAMINE
     Dates: start: 20190725, end: 20190725
  39. PARACETAMOL+CODEIN [Concomitant]
     Active Substance: ACETAMINOPHEN\CODEINE PHOSPHATE
     Dates: start: 20190814, end: 20190814
  40. PERTUZUMAB. [Suspect]
     Active Substance: PERTUZUMAB
     Dosage: MAINTENANCE DOSE?DATE OF MOST RECENT DOSE OF PERTUZUMAB (420 MG) PRIOR TO MYOCARDITIS ONSET: 09/AUG/
     Route: 042
     Dates: start: 20190809
  41. DEXAMETHASONE. [Concomitant]
     Active Substance: DEXAMETHASONE
     Route: 042
     Dates: start: 20190802, end: 20190802
  42. LACTULOSE. [Concomitant]
     Active Substance: LACTULOSE
     Dosage: CONSTIPATION PREVENTION
     Dates: start: 20190811, end: 20190815
  43. BISACODYL. [Concomitant]
     Active Substance: BISACODYL
     Dosage: CONSTIPATION PREVENTION
     Dates: start: 20190811, end: 20190811

REACTIONS (1)
  - Cardiac failure [Recovered/Resolved]

NARRATIVE: CASE EVENT DATE: 20190809
